FAERS Safety Report 19632176 (Version 1)
Quarter: 2021Q3

REPORT INFORMATION
  Report Type: Spontaneous
  Country: US (occurrence: US)
  Receive Date: 20210728
  Receipt Date: 20210728
  Transmission Date: 20211014
  Serious: No
  Sender: FDA-Public Use
  Company Number: US-ROCHE-2600963

PATIENT
  Age: 63 Year
  Sex: Female

DRUGS (1)
  1. XELODA [Suspect]
     Active Substance: CAPECITABINE
     Indication: PRODUCT USED FOR UNKNOWN INDICATION
     Dosage: DATE OF TREATMENTS: AUG/2019, 02/JAN/2020, 03/JAN/2020 AND MAY/2020
     Route: 048
     Dates: start: 201904

REACTIONS (9)
  - Mood swings [Unknown]
  - Pigmentation disorder [Unknown]
  - Nausea [Unknown]
  - Dysphagia [Unknown]
  - Appetite disorder [Unknown]
  - Headache [Unknown]
  - Vomiting [Unknown]
  - Throat irritation [Unknown]
  - Abdominal discomfort [Unknown]

NARRATIVE: CASE EVENT DATE: 20190801
